FAERS Safety Report 4732296-0 (Version None)
Quarter: 2005Q3

REPORT INFORMATION
  Report Type: 
  Country: None (occurrence: None)
  Receive Date: 20050726
  Receipt Date: 20050207
  Transmission Date: 20060218
  Serious: Yes (Other)
  Sender: FDA-Public Use
  Company Number: 05SPA0064

PATIENT
  Age: 62 Year
  Sex: Male

DRUGS (11)
  1. AGGRASTAT [Suspect]
     Indication: ACUTE CORONARY SYNDROME
     Dosage: 10 UG/ML; 10ML/H
     Dates: start: 20050131, end: 20050131
  2. LEVOTHYROXINE SODIUM [Concomitant]
  3. ASPIRIN [Concomitant]
  4. ATORVASTATIN CALCIUM [Concomitant]
  5. CARVEDILOL [Concomitant]
  6. CIPROFLOXACIN [Concomitant]
  7. CLOPIDOGREL BISULFATE [Concomitant]
  8. ENOXAPARIN SODIUM [Concomitant]
  9. FOLIC ACID [Concomitant]
  10. NITROGLYCERIN [Concomitant]
  11. OMEPRAZOLE [Concomitant]

REACTIONS (1)
  - THROMBOCYTOPENIA [None]
